FAERS Safety Report 18853189 (Version 1)
Quarter: 2021Q1

REPORT INFORMATION
  Report Type: Spontaneous
  Country: US (occurrence: US)
  Receive Date: 20210205
  Receipt Date: 20210205
  Transmission Date: 20210420
  Serious: No
  Sender: FDA-Public Use
  Company Number: US-PERRIGO-20US018926

PATIENT
  Sex: Female

DRUGS (1)
  1. TRETINOIN. [Suspect]
     Active Substance: TRETINOIN
     Indication: MELANOCYTIC NAEVUS
     Dosage: UNK
     Route: 061
     Dates: start: 202001

REACTIONS (3)
  - Off label use [Unknown]
  - Feeling hot [Unknown]
  - Skin discolouration [Unknown]

NARRATIVE: CASE EVENT DATE: 202001
